FAERS Safety Report 8330840-8 (Version None)
Quarter: 2012Q2

REPORT INFORMATION
  Report Type: 
  Country: None (occurrence: None)
  Receive Date: 20120502
  Receipt Date: 20120411
  Transmission Date: 20120825
  Serious: No
  Sender: FDA-Public Use
  Company Number: US-AMGEN-USASP2012019978

PATIENT
  Age: 82 Year
  Sex: Female

DRUGS (1)
  1. ENBREL [Suspect]
     Indication: PSORIASIS
     Dosage: 50 MG, 2 TIMES/WK
     Dates: start: 20120220

REACTIONS (13)
  - PARANASAL SINUS HYPERSECRETION [None]
  - INJECTION SITE RASH [None]
  - DYSPHONIA [None]
  - OCULAR ICTERUS [None]
  - FATIGUE [None]
  - INJECTION SITE HAEMATOMA [None]
  - DRY MOUTH [None]
  - DRY EYE [None]
  - PSORIASIS [None]
  - INJECTION SITE PRURITUS [None]
  - COUGH [None]
  - PAIN IN EXTREMITY [None]
  - INJECTION SITE ERYTHEMA [None]
